FAERS Safety Report 5404760-2 (Version None)
Quarter: 2007Q3

REPORT INFORMATION
  Report Type: 
  Country: None (occurrence: None)
  Receive Date: 20070801
  Receipt Date: 20070725
  Transmission Date: 20080115
  Serious: Yes (Other)
  Sender: FDA-Public Use
  Company Number: 2007SP010224

PATIENT
  Age: 78 Year
  Sex: Female

DRUGS (2)
  1. PEG-INTRON [Suspect]
     Indication: HEPATITIS C
     Dosage: 100  MCG;QD;SC
     Route: 058
     Dates: start: 20070424, end: 20070511
  2. REBETOL [Suspect]
     Indication: HEPATITIS C
     Dosage: 600 MG;QD;PO
     Route: 048
     Dates: start: 20070424, end: 20070511

REACTIONS (4)
  - BURNING SENSATION [None]
  - GENERALISED ERYTHEMA [None]
  - INJECTION SITE ERYTHEMA [None]
  - PRURITUS [None]
